FAERS Safety Report 18129202 (Version 1)
Quarter: 2020Q3

REPORT INFORMATION
  Report Type: Spontaneous
  Country: US (occurrence: US)
  Receive Date: 20200808
  Receipt Date: 20200808
  Transmission Date: 20201103
  Serious: Yes (Disabling, Other)
  Sender: FDA-Public Use
  Company Number: None

PATIENT
  Age: 36 Year
  Sex: Female
  Weight: 65.25 kg

DRUGS (3)
  1. FISH OIL [Concomitant]
     Active Substance: FISH OIL
  2. ZYCLARA [Suspect]
     Active Substance: IMIQUIMOD
     Indication: HAEMANGIOMA
     Dosage: ?          QUANTITY:1 DIME SIZED;?
     Route: 061
     Dates: start: 20150313, end: 20150415
  3. MULTI [Concomitant]

REACTIONS (2)
  - Weight decreased [None]
  - Sinusitis [None]

NARRATIVE: CASE EVENT DATE: 20150415
